FAERS Safety Report 5471585-1 (Version None)
Quarter: 2007Q3

REPORT INFORMATION
  Report Type: 
  Country: None (occurrence: None)
  Receive Date: 20070928
  Receipt Date: 20070312
  Transmission Date: 20080115
  Serious: No
  Sender: FDA-Public Use
  Company Number: US-BRISTOL-MYERS SQUIBB COMPANY-13656731

PATIENT
  Age: 81 Year
  Sex: Male
  Weight: 82 kg

DRUGS (8)
  1. DEFINITY [Suspect]
     Indication: ECHOCARDIOGRAM
     Dosage: DEFINITY 3CC;IV PUSH IN NORMAL SALINE.
     Route: 042
     Dates: start: 20070122
  2. DEFINITY [Suspect]
     Route: 042
     Dates: start: 20070122
  3. VYTORIN [Concomitant]
  4. ATENOLOL [Concomitant]
  5. WARFARIN [Concomitant]
  6. HYDROCHLOROTHIAZIDE [Concomitant]
  7. FEXOFENADINE HCL [Concomitant]
  8. LEVOTHYROXINE SODIUM [Concomitant]

REACTIONS (4)
  - BACK PAIN [None]
  - BLOOD PRESSURE INCREASED [None]
  - DYSPNOEA [None]
  - ERYTHEMA [None]
